FAERS Safety Report 8024920-4 (Version None)
Quarter: 2012Q1

REPORT INFORMATION
  Report Type: 
  Country: None (occurrence: None)
  Receive Date: 20120103
  Receipt Date: 20110222
  Transmission Date: 20120608
  Serious: Yes (Life-Threatening, Hospitalization)
  Sender: FDA-Public Use
  Company Number: GB-022188

PATIENT
  Age: 81 Year
  Sex: Male
  Weight: 61.5 kg

DRUGS (2)
  1. (OFATUMUMAB) [Suspect]
     Indication: CHRONIC LYMPHOCYTIC LEUKAEMIA
     Dosage: 300MG AT DAY 1, 1000MG AT DAY 8 FOLLOWED BY 1000MG EVERY 28 DAYS
     Route: 042
     Dates: end: 20101117
  2. (CHLORAMBUCIL) [Suspect]
     Indication: CHRONIC LYMPHOCYTIC LEUKAEMIA
     Dosage: 10 MGM2 DAYS 1-7 EVERY 28 DAYS
     Route: 048
     Dates: end: 20101117

REACTIONS (5)
  - FEBRILE NEUTROPENIA [None]
  - HEART RATE INCREASED [None]
  - MALAISE [None]
  - OXYGEN SATURATION DECREASED [None]
  - NASOPHARYNGITIS [None]
